FAERS Safety Report 17876550 (Version 5)
Quarter: 2020Q3

REPORT INFORMATION
  Report Type: Report from Study
  Country: US (occurrence: US)
  Receive Date: 20200609
  Receipt Date: 20200928
  Transmission Date: 20201103
  Serious: No
  Sender: FDA-Public Use
  Company Number: NVSC2020US160788

PATIENT
  Sex: Male

DRUGS (2)
  1. COSENTYX [Suspect]
     Active Substance: SECUKINUMAB
     Indication: PSORIASIS
     Dosage: 300 MG, QMO
     Route: 058
     Dates: start: 20190401
  2. COSENTYX [Suspect]
     Active Substance: SECUKINUMAB
     Dosage: 150 MGX2, QMO
     Route: 065
     Dates: start: 20200419

REACTIONS (3)
  - Incorrect dose administered [Unknown]
  - Device defective [Unknown]
  - Accidental exposure to product [Unknown]
